FAERS Safety Report 4443908-3 (Version None)
Quarter: 2004Q3

REPORT INFORMATION
  Report Type: 
  Country: None (occurrence: None)
  Receive Date: 20040729
  Receipt Date: 20040419
  Transmission Date: 20050211
  Serious: Yes (Other)
  Sender: FDA-Public Use
  Company Number: US-JNJFOC-20040404230

PATIENT
  Age: 64 Year
  Sex: Male

DRUGS (1)
  1. RISPERDAL [Suspect]
     Indication: SCHIZOPHRENIA
     Dosage: 3 MG, 2  IN 1 DAY, ORAL
     Route: 048
     Dates: start: 19980628

REACTIONS (1)
  - CEREBROVASCULAR ACCIDENT [None]
